FAERS Safety Report 5797063-8 (Version None)
Quarter: 2008Q3

REPORT INFORMATION
  Report Type: 
  Country: None (occurrence: None)
  Receive Date: 20080701
  Receipt Date: 20080624
  Transmission Date: 20090109
  Serious: Yes (Other)
  Sender: FDA-Public Use
  Company Number: US-ELI_LILLY_AND_COMPANY-US200806005533

PATIENT
  Sex: Female

DRUGS (2)
  1. HUMATROPE [Suspect]
     Dosage: UNK, UNKNOWN
     Dates: start: 20080101
  2. NEUROTROPIN [Concomitant]
     Dosage: UNK, UNKNOWN
     Dates: end: 20080101

REACTIONS (3)
  - CONVULSION [None]
  - HYPERTENSION [None]
  - LEFT VENTRICULAR HYPERTROPHY [None]
